FAERS Safety Report 7200594-7 (Version None)
Quarter: 2010Q4

REPORT INFORMATION
  Report Type: 
  Country: None (occurrence: None)
  Receive Date: 20101206
  Receipt Date: 20101122
  Transmission Date: 20110411
  Serious: Yes (Hospitalization)
  Sender: FDA-Public Use
  Company Number: 2010026965

PATIENT
  Age: 52 Year
  Sex: Female

DRUGS (6)
  1. VIVAGLOBIN [Suspect]
     Indication: IMMUNODEFICIENCY COMMON VARIABLE
     Dosage: (9.6 G 1X/WEEK, 3-4 SITES OVER 1-2 HOURS SUBCUTANEOUS)
     Route: 058
     Dates: start: 20091029
  2. VIVAGLOBIN [Suspect]
     Indication: IMMUNODEFICIENCY COMMON VARIABLE
     Dosage: (9.6 G 1X/WEEK, 3-4 SITES OVER 1-2 HOURS SUBCUTANEOUS)
     Route: 058
     Dates: start: 20101111
  3. HYDROCHLOROTHIAZIDE [Concomitant]
  4. LIPITOR [Concomitant]
  5. LISINOPRIL [Concomitant]
  6. NOVOLOG INSULIN 70/30 (INSULIN) [Concomitant]

REACTIONS (4)
  - ABDOMINAL PAIN UPPER [None]
  - PRURITUS [None]
  - SERUM SICKNESS [None]
  - URTICARIA [None]
